FAERS Safety Report 13966153 (Version 2)
Quarter: 2017Q4

REPORT INFORMATION
  Report Type: Report from Study
  Country: CA (occurrence: CA)
  Receive Date: 20170913
  Receipt Date: 20171009
  Transmission Date: 20180320
  Serious: Yes (Death, Hospitalization)
  Sender: FDA-Public Use
  Company Number: CA-HLSUS-2017-CA-000956

PATIENT
  Age: 46 Year
  Sex: Male

DRUGS (17)
  1. CLOZARIL [Suspect]
     Active Substance: CLOZAPINE
     Indication: SCHIZOPHRENIA
     Dosage: 200 MG BED TIME
     Route: 048
     Dates: start: 20101018
  2. SANDOZ-CIPROFLOXACIN [Concomitant]
     Dosage: 1 TABLET ORALLY TWICE A DAY ORALLY
     Route: 048
  3. APO-GABPENTIN [Concomitant]
     Dosage: 2 CAPSULES 3 TIMES A DAY
  4. TEVA-CEPHALEXIN [Concomitant]
     Active Substance: CEPHALEXIN
     Dosage: 500 MG DAILY
     Route: 048
  5. APO-OMEPRAZOLE [Concomitant]
     Active Substance: OMEPRAZOLE
  6. SANDOZ-DICLOFENAC EC [Concomitant]
  7. TEVA-CLINDAMYCIN [Concomitant]
     Active Substance: CLINDAMYCIN PHOSPHATE
     Dosage: 3 CAPSULE EVERY 6 HOURS
  8. KETOROLAC [Concomitant]
     Active Substance: KETOROLAC\KETOROLAC TROMETHAMINE
     Dosage: 1 TABLET EVERY 6 HOURS
  9. OXYNEO [Concomitant]
     Active Substance: OXYCODONE
     Dosage: 1 TABLET IN THE MORNING AND 2 AT BEDTIME
  10. APO-SULFATRIM DS 800 [Concomitant]
  11. RATIO-LENOLTEC [Concomitant]
     Dosage: 1 OR 2 TABLETS ORALLY EVERY 4 HOURS
  12. APO-AMOXICLAV [Concomitant]
  13. TEVA-VENLAFAXINE XR [Concomitant]
     Active Substance: VENLAFAXINE HYDROCHLORIDE
     Dosage: 700 MG IN THE MORNING
  14. ACIDOPHILUS PROB 1 BILLION [Concomitant]
  15. SANDOZ-CIPROFLOXACIN [Concomitant]
     Dosage: 1 TABLET ORALLY TWICE A DAY
     Route: 048
  16. TECTA DR [Concomitant]
     Dosage: 1 TABLET EVERY MORNING
  17. TEVA-VENLAFAXINE XR [Concomitant]
     Active Substance: VENLAFAXINE HYDROCHLORIDE
     Dosage: 1 CAPSULE DAILY

REACTIONS (10)
  - Epilepsy [Recovered/Resolved]
  - Ankle fracture [Unknown]
  - Hallucination, auditory [Unknown]
  - White blood cell count increased [Unknown]
  - Death [Fatal]
  - Cerebrovascular accident [Unknown]
  - Delirium [Recovered/Resolved]
  - Pain in extremity [Unknown]
  - Myocardial infarction [Unknown]
  - Psychotic disorder [Unknown]

NARRATIVE: CASE EVENT DATE: 201010
